FAERS Safety Report 25000521 (Version 2)
Quarter: 2025Q1

REPORT INFORMATION
  Report Type: Spontaneous
  Country: US (occurrence: US)
  Receive Date: 20250222
  Receipt Date: 20250326
  Transmission Date: 20250408
  Serious: No
  Sender: ROCHE
  Company Number: US-ROCHE-10000208759

PATIENT
  Sex: Female

DRUGS (2)
  1. XOLAIR [Suspect]
     Active Substance: OMALIZUMAB
     Indication: Idiopathic urticaria
     Dosage: STRENGTH: 300 MG/2ML
     Route: 058
     Dates: start: 202209
  2. XOLAIR [Suspect]
     Active Substance: OMALIZUMAB
     Indication: Intra-uterine contraceptive device insertion

REACTIONS (1)
  - Urticaria [Unknown]
